FAERS Safety Report 20257935 (Version 1)
Quarter: 2021Q4

REPORT INFORMATION
  Report Type: Spontaneous
  Country: US (occurrence: None)
  Receive Date: 20211229
  Receipt Date: 20211229
  Transmission Date: 20220303
  Serious: Yes (Other)
  Sender: FDA-Public Use
  Company Number: None

PATIENT
  Sex: 0

DRUGS (1)
  1. TRIAMCINOLONE ACETONIDE [Suspect]
     Active Substance: TRIAMCINOLONE ACETONIDE
     Dates: start: 20211123

REACTIONS (4)
  - Abscess [None]
  - Infection [None]
  - Morganella test positive [None]
  - Suspected product contamination [None]

NARRATIVE: CASE EVENT DATE: 20211202
